FAERS Safety Report 5531287-X (Version None)
Quarter: 2007Q4

REPORT INFORMATION
  Report Type: 
  Country: None (occurrence: None)
  Receive Date: 20071120
  Receipt Date: 20071108
  Transmission Date: 20080405
  Serious: Yes (Hospitalization)
  Sender: FDA-Public Use
  Company Number: AEKWT200700262

PATIENT
  Age: 13 Month
  Sex: Female

DRUGS (3)
  1. IMMUNE GLOBULIN INTRAVENOUS (HUMAN) [Suspect]
     Indication: PEMPHIGOID
     Dosage: 400 MG/KG; QD; IV
     Route: 042
     Dates: start: 20050401
  2. PREDNISOLONE [Concomitant]
  3. DAPSONE [Concomitant]

REACTIONS (5)
  - ENCEPHALITIS [None]
  - HAEMORRHAGIC CEREBRAL INFARCTION [None]
  - HEMIPARESIS [None]
  - HYDROCEPHALUS [None]
  - MENINGITIS TUBERCULOUS [None]
